FAERS Safety Report 12988548 (Version 2)
Quarter: 2017Q1

REPORT INFORMATION
  Report Type: Spontaneous
  Country: IT (occurrence: IT)
  Receive Date: 20161130
  Receipt Date: 20170119
  Transmission Date: 20170428
  Serious: Yes (Other)
  Sender: FDA-Public Use
  Company Number: IT-GILEAD-2016-0244966

PATIENT
  Age: 69 Year
  Sex: Female

DRUGS (9)
  1. METFORMIN [Concomitant]
     Active Substance: METFORMIN HYDROCHLORIDE
  2. DOXAZOSIN [Concomitant]
     Active Substance: DOXAZOSIN\DOXAZOSIN MESYLATE
  3. ATENOLOL. [Concomitant]
     Active Substance: ATENOLOL
  4. HARVONI [Suspect]
     Active Substance: LEDIPASVIR\SOFOSBUVIR
     Indication: HEPATITIS C
     Route: 065
  5. REBETOL [Suspect]
     Active Substance: RIBAVIRIN
     Indication: HEPATITIS C
     Dosage: UNK
     Route: 065
  6. PLAUNAC [Concomitant]
     Active Substance: OLMESARTAN MEDOXOMIL
  7. HALCION [Concomitant]
     Active Substance: TRIAZOLAM
  8. LERCANIDIPINE [Concomitant]
     Active Substance: LERCANIDIPINE
  9. LASIX [Concomitant]
     Active Substance: FUROSEMIDE

REACTIONS (2)
  - Extrasystoles [Unknown]
  - Palpitations [Unknown]

NARRATIVE: CASE EVENT DATE: 20160527
